FAERS Safety Report 16169916 (Version 1)
Quarter: 2019Q2

REPORT INFORMATION
  Report Type: Spontaneous
  Country: GB (occurrence: GB)
  Receive Date: 20190408
  Receipt Date: 20190408
  Transmission Date: 20190711
  Serious: Yes (Hospitalization)
  Sender: FDA-Public Use
  Company Number: IND-GB-009507513-1904GBR001882

PATIENT
  Age: 62 Year
  Sex: Female
  Weight: 54 kg

DRUGS (4)
  1. LACTULOSE. [Concomitant]
     Active Substance: LACTULOSE
     Dosage: UNK
  2. ATORVASTATIN [Concomitant]
     Active Substance: ATORVASTATIN
  3. OMEPRAZOLE. [Concomitant]
     Active Substance: OMEPRAZOLE
     Dosage: 20 MILLIGRAM, DAILY MORNING
  4. ETORICOXIB 60 MG FILM-COATED TABLETS [Suspect]
     Active Substance: ETORICOXIB
     Indication: INFLAMMATION
     Dosage: 120 MILLIGRAM, DAILY IN THE MORNING
     Route: 048
     Dates: start: 201810, end: 20190310

REACTIONS (3)
  - Intestinal dilatation [None]
  - Intestinal ulcer [Not Recovered/Not Resolved]
  - Pain [Unknown]

NARRATIVE: CASE EVENT DATE: 20190314
